FAERS Safety Report 7637498-1 (Version None)
Quarter: 2011Q3

REPORT INFORMATION
  Report Type: 
  Country: None (occurrence: None)
  Receive Date: 20110726
  Receipt Date: 20110714
  Transmission Date: 20111222
  Serious: Yes (Other)
  Sender: FDA-Public Use
  Company Number: PHHY2010CA73135

PATIENT
  Sex: Male

DRUGS (3)
  1. EXJADE [Suspect]
     Indication: THALASSAEMIA
     Dosage: 500 MG, QD
     Route: 048
     Dates: start: 20110101
  2. PENICILLIN [Concomitant]
  3. FOLIC ACID [Concomitant]

REACTIONS (13)
  - ASTHENIA [None]
  - SKIN DISCOLOURATION [None]
  - VISUAL IMPAIRMENT [None]
  - CARDIOMEGALY [None]
  - ARTHRALGIA [None]
  - LIVER DISORDER [None]
  - DECREASED APPETITE [None]
  - SERUM FERRITIN INCREASED [None]
  - TOOTH DISORDER [None]
  - MYALGIA [None]
  - GAIT DISTURBANCE [None]
  - WEIGHT DECREASED [None]
  - PAIN IN EXTREMITY [None]
